FAERS Safety Report 5628269-6 (Version None)
Quarter: 2008Q1

REPORT INFORMATION
  Report Type: 
  Country: None (occurrence: None)
  Receive Date: 20080215
  Receipt Date: 20080208
  Transmission Date: 20080703
  Serious: Yes (Other)
  Sender: FDA-Public Use
  Company Number: JP-GENENTECH-255930

PATIENT
  Age: 78 Year
  Sex: Male

DRUGS (2)
  1. AVASTIN [Suspect]
     Indication: MACULAR DEGENERATION
     Dosage: 1 MG, UNK
     Route: 031
  2. TOPICAL ANESTHESIA (UNK INGREDIENTS) [Concomitant]
     Indication: PREMEDICATION

REACTIONS (1)
  - DETACHMENT OF RETINAL PIGMENT EPITHELIUM [None]
